FAERS Safety Report 5025772-7 (Version None)
Quarter: 2006Q2

REPORT INFORMATION
  Report Type: 
  Country: None (occurrence: None)
  Receive Date: 20060427
  Receipt Date: 20050802
  Transmission Date: 20061013
  Serious: Yes (Disabling)
  Sender: FDA-Public Use
  Company Number: 2005041304

PATIENT
  Age: 59 Year
  Sex: Female
  Weight: 72.5755 kg

DRUGS (8)
  1. ZITHROMAX [Suspect]
     Indication: BRONCHITIS
     Dosage: (INTERVAL: EVERY DAY), ORAL
     Route: 048
     Dates: start: 20050227, end: 20050301
  2. DIURETICS (DIURETICS) [Concomitant]
  3. ANTIHYPERTENSIVES (ANTIHYPERTENSIVES) [Concomitant]
  4. CHOLESTEROL- AND TRIGLYCERIDE REDUCERS [Concomitant]
  5. ZETIA [Concomitant]
  6. TRICOR [Concomitant]
  7. TEVETEN [Concomitant]
  8. DARVOCET-N 100 [Concomitant]

REACTIONS (2)
  - DEAFNESS [None]
  - TINNITUS [None]
